FAERS Safety Report 15600670 (Version 1)
Quarter: 2018Q4

REPORT INFORMATION
  Report Type: Spontaneous
  Country: IT (occurrence: IT)
  Receive Date: 20181109
  Receipt Date: 20181109
  Transmission Date: 20190205
  Serious: Yes (Other)
  Sender: FDA-Public Use
  Company Number: IT-009507513-1811ITA000693

PATIENT
  Age: 84 Year
  Sex: Male
  Weight: 85 kg

DRUGS (1)
  1. ZEPATIER [Suspect]
     Active Substance: ELBASVIR\GRAZOPREVIR
     Indication: CHRONIC HEPATITIS C
     Dosage: 50 MILLIGRAM, QD
     Route: 048
     Dates: start: 20180316, end: 20180513

REACTIONS (1)
  - Stevens-Johnson syndrome [Recovering/Resolving]

NARRATIVE: CASE EVENT DATE: 20180425
